FAERS Safety Report 8588726-X (Version None)
Quarter: 2012Q3

REPORT INFORMATION
  Report Type: 
  Country: None (occurrence: None)
  Receive Date: 20120813
  Receipt Date: 20120808
  Transmission Date: 20120928
  Serious: Yes (Other)
  Sender: FDA-Public Use
  Company Number: PHEH2011US00497

PATIENT
  Sex: Male

DRUGS (2)
  1. ZOMETA [Suspect]
  2. AREDIA [Suspect]

REACTIONS (35)
  - METASTASES TO BONE [None]
  - GANGRENE [None]
  - ATROPHY [None]
  - SPINAL OSTEOARTHRITIS [None]
  - CONFUSIONAL STATE [None]
  - DYSPHAGIA [None]
  - DYSARTHRIA [None]
  - EMOTIONAL DISTRESS [None]
  - METASTATIC MALIGNANT MELANOMA [None]
  - OEDEMA [None]
  - OSTEONECROSIS OF JAW [None]
  - DIVERTICULUM INTESTINAL [None]
  - OSTEOPENIA [None]
  - VASCULAR CALCIFICATION [None]
  - INJURY [None]
  - CARDIOMEGALY [None]
  - ISCHAEMIA [None]
  - ARTERIOSCLEROSIS [None]
  - SWELLING [None]
  - OSTEOARTHRITIS [None]
  - BACK PAIN [None]
  - INFECTION [None]
  - METASTASES TO LIVER [None]
  - MENTAL STATUS CHANGES [None]
  - PAIN IN EXTREMITY [None]
  - DEFORMITY [None]
  - RECTAL HAEMORRHAGE [None]
  - OSTEOMYELITIS [None]
  - PROSTATE CANCER [None]
  - SKIN CANCER [None]
  - ATELECTASIS [None]
  - LACUNAR INFARCTION [None]
  - PAIN [None]
  - METASTASES TO CENTRAL NERVOUS SYSTEM [None]
  - ASPIRATION [None]
